FAERS Safety Report 5151929-0 (Version None)
Quarter: 2006Q4

REPORT INFORMATION
  Report Type: 
  Country: None (occurrence: None)
  Receive Date: 20061106
  Receipt Date: 20061025
  Transmission Date: 20070319
  Serious: Yes (Hospitalization)
  Sender: FDA-Public Use
  Company Number: 2006BH014234

PATIENT
  Age: 50 Year
  Sex: Female

DRUGS (2)
  1. GAMMAGARD S/D [Suspect]
     Indication: POLYMYOSITIS
     Dosage: 1 GM; AS NEEDED; IV
     Route: 042
     Dates: start: 20060912
  2. GAMMAGARD [Suspect]
     Indication: POLYMYOSITIS
     Dosage: 1 GM; AS NEEDED; IV
     Route: 042
     Dates: start: 20060912

REACTIONS (1)
  - PULMONARY EMBOLISM [None]
